FAERS Safety Report 25970224 (Version 1)
Quarter: 2025Q4

REPORT INFORMATION
  Report Type: Spontaneous
  Country: US (occurrence: None)
  Receive Date: 20251028
  Receipt Date: 20251028
  Transmission Date: 20260118
  Serious: No
  Sender: UCB
  Company Number: US-UCBSA-2025042295

PATIENT
  Age: 41 Year

DRUGS (3)
  1. BIMZELX [Suspect]
     Active Substance: BIMEKIZUMAB-BKZX
     Indication: Rheumatoid arthritis
     Dosage: 160 MILLIGRAM, EV 4 WEEKS
  2. BIMZELX [Suspect]
     Active Substance: BIMEKIZUMAB-BKZX
     Indication: Off label use
  3. ARNUITY ELLIPTA [Suspect]
     Active Substance: FLUTICASONE FUROATE
     Indication: Product used for unknown indication
     Dosage: INHALER

REACTIONS (2)
  - Drug hypersensitivity [Unknown]
  - Off label use [Unknown]
